FAERS Safety Report 7545304-9 (Version None)
Quarter: 2011Q2

REPORT INFORMATION
  Report Type: 
  Country: None (occurrence: None)
  Receive Date: 20110614
  Receipt Date: 20110531
  Transmission Date: 20111010
  Serious: Yes (Other)
  Sender: FDA-Public Use
  Company Number: TR-RANBAXY-2011RR-45261

PATIENT
  Age: 43 Year
  Sex: Male

DRUGS (2)
  1. CETIRIZINE HCL [Suspect]
     Indication: RHINITIS ALLERGIC
     Route: 048
  2. HYDROXYZINE [Suspect]

REACTIONS (1)
  - DRUG ERUPTION [None]
